FAERS Safety Report 6473702-3 (Version None)
Quarter: 2009Q4

REPORT INFORMATION
  Report Type: 
  Country: None (occurrence: None)
  Receive Date: 20091204
  Receipt Date: 20091029
  Transmission Date: 20100525
  Serious: No
  Sender: FDA-Public Use
  Company Number: US-JNJFOC-20091100543

PATIENT
  Sex: Female
  Weight: 63.5 kg

DRUGS (7)
  1. SANDOZ FENTANYL TRANSDERMAL SYSTEM [Suspect]
     Indication: BONE PAIN
     Route: 062
  2. AMLODIPINE BESYLATE [Concomitant]
     Indication: BLOOD PRESSURE
     Route: 048
  3. CARVEDILOL [Concomitant]
     Indication: BLOOD PRESSURE
     Route: 048
  4. LISINOPRIL [Concomitant]
     Indication: BLOOD PRESSURE
     Route: 048
  5. VICODIN [Concomitant]
     Indication: PAIN
     Dosage: AS NEEDED
     Route: 048
  6. LASIX [Concomitant]
     Indication: BLOOD PRESSURE
     Dosage: 1-2 TABLETS AS NEEDED
     Route: 048
  7. KLOR-CON [Concomitant]
     Route: 048

REACTIONS (4)
  - FEELING ABNORMAL [None]
  - HYPERSOMNIA [None]
  - SPEECH DISORDER [None]
  - TREATMENT NONCOMPLIANCE [None]
